FAERS Safety Report 23441650 (Version 2)
Quarter: 2024Q1

REPORT INFORMATION
  Report Type: Spontaneous
  Country: US (occurrence: US)
  Receive Date: 20240125
  Receipt Date: 20240208
  Transmission Date: 20240409
  Serious: No
  Sender: FDA-Public Use
  Company Number: US-AMGEN-USASP2024016072

PATIENT
  Sex: Female

DRUGS (5)
  1. PROLIA [Suspect]
     Active Substance: DENOSUMAB
     Indication: Product used for unknown indication
     Dosage: UNK
     Route: 065
  2. POTASSIUM [Concomitant]
     Active Substance: POTASSIUM
     Dosage: UNK, QD
  3. MAGNESIUM [Concomitant]
     Active Substance: MAGNESIUM
     Dosage: UNK, QD
  4. CALCIUM [Concomitant]
     Active Substance: CALCIUM
     Dosage: 100 MILLIGRAM
  5. VITAMIN D [Concomitant]
     Active Substance: VITAMIN D NOS
     Dosage: 400 MICROGRAM

REACTIONS (1)
  - Myalgia [Unknown]
